FAERS Safety Report 5988166-3 (Version None)
Quarter: 2008Q4

REPORT INFORMATION
  Report Type: 
  Country: None (occurrence: None)
  Receive Date: 20081203
  Receipt Date: 20081126
  Transmission Date: 20090506
  Serious: Yes (Other)
  Sender: FDA-Public Use
  Company Number: 2008SP018489

PATIENT
  Age: 60 Year
  Sex: Male

DRUGS (3)
  1. NITRO-DUR [Suspect]
     Indication: BLOOD PRESSURE
     Dosage: 0.2 MG; TDER
     Route: 062
  2. NITRO-DUR [Suspect]
     Indication: LUNG DISORDER
     Dosage: 0.2 MG; TDER
     Route: 062
  3. NITRO-DUR [Suspect]
     Indication: OFF LABEL USE
     Dosage: 0.2 MG; TDER
     Route: 062

REACTIONS (4)
  - CEREBROVASCULAR ACCIDENT [None]
  - HEADACHE [None]
  - SEXUAL DYSFUNCTION [None]
  - THERAPEUTIC RESPONSE UNEXPECTED [None]
